FAERS Safety Report 7156916-9 (Version None)
Quarter: 2010Q4

REPORT INFORMATION
  Report Type: 
  Country: None (occurrence: None)
  Receive Date: 20101214
  Receipt Date: 20101202
  Transmission Date: 20110411
  Serious: Yes (Hospitalization, Other)
  Sender: FDA-Public Use
  Company Number: PHHY2010NL47125

PATIENT
  Sex: Male

DRUGS (13)
  1. ZOMETA [Suspect]
     Indication: PROSTATE CANCER
     Dosage: UNK
     Route: 042
     Dates: start: 20100224
  2. ZOMETA [Suspect]
     Dosage: 4 MG/ 5ML  20 MIN.
     Route: 042
     Dates: start: 20100325
  3. ZOMETA [Suspect]
     Dosage: UNK
     Route: 042
     Dates: start: 20100422
  4. ZOMETA [Suspect]
     Dosage: UNK
     Route: 042
     Dates: start: 20100521
  5. ZOMETA [Suspect]
     Dosage: UNK
     Dates: start: 20100618
  6. ZOMETA [Suspect]
     Dosage: UNK
     Route: 042
     Dates: start: 20100716
  7. ZOMETA [Suspect]
     Dosage: UNK
     Dates: start: 20100812
  8. ZOMETA [Suspect]
     Dosage: UNK
     Route: 042
     Dates: start: 20100909
  9. ZOMETA [Suspect]
     Dosage: UNK
     Route: 042
     Dates: start: 20101008
  10. ZOMETA [Suspect]
     Dosage: UNK
     Dates: start: 20101104
  11. ZOMETA [Suspect]
     Dosage: 4 MG / 5 ML 1X PER 28 DAYS
     Dates: start: 20101202
  12. ZOLADEX [Concomitant]
     Dosage: ONCE PER THREE MONTHS
  13. ACENOCOUMAROL [Concomitant]

REACTIONS (13)
  - ANAEMIA [None]
  - CAST APPLICATION [None]
  - CATHETER PLACEMENT [None]
  - CONTUSION [None]
  - DIZZINESS [None]
  - DYSURIA [None]
  - FALL [None]
  - FATIGUE [None]
  - HAEMATOMA [None]
  - HAEMOGLOBIN DECREASED [None]
  - LOWER LIMB FRACTURE [None]
  - PAIN [None]
  - PALLOR [None]
